FAERS Safety Report 11359298 (Version 1)
Quarter: 2015Q3

REPORT INFORMATION
  Report Type: Spontaneous
  Country: US (occurrence: US)
  Receive Date: 20150807
  Receipt Date: 20150807
  Transmission Date: 20151125
  Serious: Yes (Other)
  Sender: FDA-Public Use
  Company Number: US-ASTRAZENECA-2015SE74645

PATIENT
  Age: 72 Year
  Sex: Female
  Weight: 50.8 kg

DRUGS (10)
  1. ALBUTEROL. [Concomitant]
     Active Substance: ALBUTEROL
     Indication: CHRONIC OBSTRUCTIVE PULMONARY DISEASE
     Dosage: DAILY
     Route: 055
  2. ALBUTEROL. [Concomitant]
     Active Substance: ALBUTEROL
     Indication: CHRONIC OBSTRUCTIVE PULMONARY DISEASE
     Dosage: AS REQUIRED (RESCUE INHALER)
     Route: 055
  3. PRILOSEC OTC [Suspect]
     Active Substance: OMEPRAZOLE MAGNESIUM
     Indication: DYSPEPSIA
     Dosage: AS REQUIRED
     Route: 048
  4. CARVEDILOL. [Concomitant]
     Active Substance: CARVEDILOL
     Indication: BLOOD PRESSURE ABNORMAL
     Route: 048
     Dates: start: 201507
  5. BRILINTA [Suspect]
     Active Substance: TICAGRELOR
     Indication: STENT PLACEMENT
     Route: 048
     Dates: start: 201310
  6. INJECTION FOR MACULAR DEGENERATION [Concomitant]
     Indication: MACULAR DEGENERATION
     Dosage: 4 INJECTIONS WERE EVERY 30 DAYS AND THE LAST 3 WERE EVERY 6 WEEKS
     Dates: start: 201502
  7. PRILOSEC OTC [Suspect]
     Active Substance: OMEPRAZOLE MAGNESIUM
     Indication: ABDOMINAL DISCOMFORT
     Dosage: AS REQUIRED
     Route: 048
  8. BABY ASPIRIN [Concomitant]
     Active Substance: ASPIRIN
     Indication: PROPHYLAXIS
     Route: 048
  9. GABAPENTIN. [Concomitant]
     Active Substance: GABAPENTIN
     Indication: NEURALGIA
     Route: 048
  10. TYLENOL [Concomitant]
     Active Substance: ACETAMINOPHEN
     Indication: HERPES ZOSTER
     Dosage: AS REQUIRED
     Route: 048

REACTIONS (18)
  - Tendon rupture [Recovered/Resolved]
  - Intentional product misuse [Unknown]
  - Myocardial infarction [Unknown]
  - Pericarditis [Unknown]
  - Contusion [Unknown]
  - Body height decreased [Unknown]
  - Off label use [Unknown]
  - Fall [Unknown]
  - Renal disorder [Unknown]
  - Lower limb fracture [Unknown]
  - Chronic obstructive pulmonary disease [Unknown]
  - Herpes zoster [Unknown]
  - Wound [Recovered/Resolved]
  - Angiopathy [Unknown]
  - Blood creatinine increased [Unknown]
  - Poor peripheral circulation [Unknown]
  - Blood pressure abnormal [Unknown]
  - Product use issue [Unknown]

NARRATIVE: CASE EVENT DATE: 2006
